FAERS Safety Report 10041862 (Version 1)
Quarter: 2014Q1

REPORT INFORMATION
  Report Type: Spontaneous
  Country: GB (occurrence: GB)
  Receive Date: 20140327
  Receipt Date: 20140327
  Transmission Date: 20141002
  Serious: Yes (Other)
  Sender: FDA-Public Use
  Company Number: GB-JNJFOC-20140310252

PATIENT
  Sex: Female

DRUGS (1)
  1. GYNO-PEVARYL [Suspect]
     Indication: PRODUCT USED FOR UNKNOWN INDICATION
     Route: 067
     Dates: start: 20140313

REACTIONS (2)
  - Urinary retention [Unknown]
  - Off label use [Unknown]
